FAERS Safety Report 4393848-3 (Version None)
Quarter: 2004Q3

REPORT INFORMATION
  Report Type: 
  Country: None (occurrence: None)
  Receive Date: 20040701
  Receipt Date: 20040616
  Transmission Date: 20050211
  Serious: Yes (Life-Threatening, Hospitalization)
  Sender: FDA-Public Use
  Company Number: 207243

PATIENT
  Age: 7 Year
  Sex: Male
  Weight: 88.1 kg

DRUGS (3)
  1. NUTROPIN AQ [Suspect]
     Indication: GROWTH HORMONE DEFICIENCY
     Dosage: 3 MG, 6/WEEK, SUBCUTANEOUS
     Route: 058
     Dates: start: 19991215, end: 20031001
  2. DEPAKOTE [Concomitant]
  3. PROZAXC(FLUOXETINE HYDROCHLORIDE) [Concomitant]

REACTIONS (20)
  - ANURIA [None]
  - ATELECTASIS [None]
  - BLOOD UREA INCREASED [None]
  - CAPILLARY DISORDER [None]
  - CYANOSIS [None]
  - DIARRHOEA [None]
  - HYPERHIDROSIS [None]
  - HYPOTENSION [None]
  - INTENTIONAL SELF-INJURY [None]
  - LETHARGY [None]
  - LEUKOPENIA [None]
  - LUNG INFILTRATION [None]
  - PETECHIAE [None]
  - PHOTOPHOBIA [None]
  - PNEUMONIA PRIMARY ATYPICAL [None]
  - RESPIRATORY FAILURE [None]
  - SEPTIC SHOCK [None]
  - TACHYCARDIA [None]
  - THERMAL BURN [None]
  - THROMBOCYTOPENIA [None]
